FAERS Safety Report 18375196 (Version 1)
Quarter: 2020Q4

REPORT INFORMATION
  Report Type: Other
  Country: CA (occurrence: CA)
  Receive Date: 20201012
  Receipt Date: 20201012
  Transmission Date: 20210114
  Serious: Yes (Hospitalization)
  Sender: FDA-Public Use
  Company Number: CA-CELLTRION INC.-2020CA028575

PATIENT

DRUGS (13)
  1. RITUXIMAB (UNKNOWN) [Suspect]
     Active Substance: RITUXIMAB
     Indication: NEUROMYELITIS OPTICA SPECTRUM DISORDER
     Dosage: 1000.0 MILLIGRAM
     Route: 042
  2. AZATHIOPRINE. [Concomitant]
     Active Substance: AZATHIOPRINE
  3. PREGABALIN. [Concomitant]
     Active Substance: PREGABALIN
  4. PROLIA [Concomitant]
     Active Substance: DENOSUMAB
  5. VALTREX [Concomitant]
     Active Substance: VALACYCLOVIR HYDROCHLORIDE
  6. AZATHIOPRINE. [Concomitant]
     Active Substance: AZATHIOPRINE
  7. LYRICA [Concomitant]
     Active Substance: PREGABALIN
  8. FAMPYRA [Concomitant]
     Active Substance: DALFAMPRIDINE
  9. CARBAMAZEPINE. [Concomitant]
     Active Substance: CARBAMAZEPINE
  10. ZOPLICONE [Concomitant]
     Active Substance: ZOPICLONE
     Route: 065
  11. BACLOFEN. [Concomitant]
     Active Substance: BACLOFEN
  12. PREDNISONE. [Concomitant]
     Active Substance: PREDNISONE
  13. TEGRETOL [Concomitant]
     Active Substance: CARBAMAZEPINE

REACTIONS (4)
  - Neuromyelitis optica spectrum disorder [Unknown]
  - Off label use [Unknown]
  - Drug ineffective [Unknown]
  - Intentional product use issue [Unknown]
